FAERS Safety Report 9200318 (Version 4)
Quarter: 2016Q3

REPORT INFORMATION
  Report Type: Spontaneous
  Country: US (occurrence: US)
  Receive Date: 20130329
  Receipt Date: 20160816
  Transmission Date: 20161109
  Serious: No
  Sender: FDA-Public Use
  Company Number: US-PFIZER INC-2013098296

PATIENT
  Age: 63 Year
  Sex: Male
  Weight: 80.73 kg

DRUGS (13)
  1. NORVIR [Concomitant]
     Active Substance: RITONAVIR
     Dosage: 200 MG, UNK
     Dates: start: 2000
  2. VIAGRA [Suspect]
     Active Substance: SILDENAFIL CITRATE
     Indication: ERECTILE DYSFUNCTION
     Dosage: 100 MG, AS NEEDED
     Route: 048
  3. NORVASC [Concomitant]
     Active Substance: AMLODIPINE BESYLATE
     Indication: HYPERTENSION
     Dosage: 10 MG, UNK
     Dates: start: 2000
  4. TRUVADA [Concomitant]
     Active Substance: EMTRICITABINE\TENOFOVIR DISOPROXIL FUMARATE
     Dosage: UNK
     Dates: start: 2000
  5. AMLODIPINE BESYLATE. [Concomitant]
     Active Substance: AMLODIPINE BESYLATE
     Dosage: 10 MG, UNK
  6. ASPIRIN. [Concomitant]
     Active Substance: ASPIRIN
     Dosage: 325 MG, UNK
  7. REYATAZ [Concomitant]
     Active Substance: ATAZANAVIR SULFATE
     Dosage: 300 MG, UNK
     Dates: start: 2000
  8. REYATAZ [Concomitant]
     Active Substance: ATAZANAVIR SULFATE
     Dosage: 300 MG, UNK
     Dates: start: 2000
  9. NORVASC [Concomitant]
     Active Substance: AMLODIPINE BESYLATE
     Dosage: UNK
     Dates: start: 2000
  10. FOSINOPRIL [Concomitant]
     Active Substance: FOSINOPRIL
     Indication: HYPERTENSION
     Dosage: 40 MG, UNK
     Dates: start: 2000
  11. NORVIR [Concomitant]
     Active Substance: RITONAVIR
     Dosage: 100 MG, UNK
     Dates: start: 2000
  12. TRUVADA [Concomitant]
     Active Substance: EMTRICITABINE\TENOFOVIR DISOPROXIL FUMARATE
     Dosage: 200 MG, UNK
     Dates: start: 2000
  13. FOSINOPRIL [Concomitant]
     Active Substance: FOSINOPRIL
     Dosage: 40 UNK, UNK
     Dates: start: 2000

REACTIONS (2)
  - Visual impairment [Recovered/Resolved]
  - Vision blurred [Recovered/Resolved]

NARRATIVE: CASE EVENT DATE: 2000
